FAERS Safety Report 6130281-8 (Version None)
Quarter: 2009Q1

REPORT INFORMATION
  Report Type: 
  Country: None (occurrence: None)
  Receive Date: 20090324
  Receipt Date: 20090324
  Transmission Date: 20090719
  Serious: Yes (Hospitalization)
  Sender: FDA-Public Use
  Company Number: PHHO2005NL16891

PATIENT
  Sex: Female
  Weight: 52 kg

DRUGS (5)
  1. CGS 20267 T30748+ [Suspect]
     Indication: BREAST CANCER
     Dosage: 2.5 MG, QD
     Route: 048
     Dates: start: 19990416
  2. PARIET [Concomitant]
  3. FLUTICASONE PROPIONATE [Concomitant]
  4. SALMETEROL [Concomitant]
  5. SERESTA [Concomitant]

REACTIONS (3)
  - FALL [None]
  - PELVIC FRACTURE [None]
  - WRIST FRACTURE [None]
